FAERS Safety Report 4438897-1 (Version None)
Quarter: 2004Q3

REPORT INFORMATION
  Report Type: 
  Country: None (occurrence: None)
  Receive Date: 20040831
  Receipt Date: 20040816
  Transmission Date: 20050211
  Serious: Yes (Hospitalization)
  Sender: FDA-Public Use
  Company Number: 2004CG01549

PATIENT
  Age: 70 Year
  Sex: Female

DRUGS (3)
  1. CRESTOR [Suspect]
     Indication: HYPERCHOLESTEROLAEMIA
     Dates: start: 20040601, end: 20040728
  2. REYATAZ [Suspect]
     Indication: HIV INFECTION
     Dates: start: 20040701, end: 20040728
  3. NORVIR [Concomitant]

REACTIONS (1)
  - HYPERBILIRUBINAEMIA [None]
